FAERS Safety Report 24710204 (Version 3)
Quarter: 2025Q3

REPORT INFORMATION
  Report Type: Report from Study
  Country: US (occurrence: US)
  Receive Date: 20241209
  Receipt Date: 20250829
  Transmission Date: 20251020
  Serious: Yes (Other)
  Sender: ABBVIE
  Company Number: US-ABBVIE-6033586

PATIENT
  Age: 61 Year
  Sex: Female

DRUGS (1)
  1. RINVOQ [Suspect]
     Active Substance: UPADACITINIB
     Indication: Rheumatoid arthritis
     Route: 048
     Dates: start: 20240229

REACTIONS (8)
  - Shoulder operation [Unknown]
  - Tendon rupture [Not Recovered/Not Resolved]
  - Exostosis [Unknown]
  - Unevaluable event [Unknown]
  - Spinal disorder [Not Recovered/Not Resolved]
  - Degenerative bone disease [Not Recovered/Not Resolved]
  - Spinal operation [Unknown]
  - Neck surgery [Unknown]

NARRATIVE: CASE EVENT DATE: 20240101
